FAERS Safety Report 23979108 (Version 2)
Quarter: 2024Q3

REPORT INFORMATION
  Report Type: Report from Study
  Country: JP (occurrence: JP)
  Receive Date: 20240615
  Receipt Date: 20240726
  Transmission Date: 20241017
  Serious: No
  Sender: ABBVIE
  Company Number: JP-ABBVIE-19K-087-2897659-00

PATIENT
  Age: 73 Year
  Sex: Male
  Weight: 50 kg

DRUGS (8)
  1. CARBIDOPA\LEVODOPA [Suspect]
     Active Substance: CARBIDOPA\LEVODOPA
     Indication: Parkinson^s disease
     Dosage: MD: 12 ML, CD: 3.8 ML/HR 10 HRS, ED: 1.0 ML/UNIT  2
     Route: 050
     Dates: start: 20171021, end: 20191017
  2. CARBIDOPA\LEVODOPA [Suspect]
     Active Substance: CARBIDOPA\LEVODOPA
     Dosage: MD: 12 ML, CD: 3.8 ML/HR 10 HRS, ED: 1.4 ML/UNIT  2
     Route: 050
     Dates: start: 20191017
  3. CLONAZEPAM [Concomitant]
     Active Substance: CLONAZEPAM
     Indication: Product used for unknown indication
     Dosage: 2 TABLET; FORM STRENGTH: 0.5 MILLIGRAM
     Route: 048
  4. ROTIGOTINE [Concomitant]
     Active Substance: ROTIGOTINE
     Indication: Parkinson^s disease
     Route: 062
  5. ELOBIXIBAT [Concomitant]
     Active Substance: ELOBIXIBAT
     Indication: Product used for unknown indication
     Route: 048
     Dates: start: 20190820
  6. ESZOPICLONE [Concomitant]
     Active Substance: ESZOPICLONE
     Indication: Product used for unknown indication
     Dosage: 1 TABLET; FORM STRENGTH: 1 MILLIGRAM
     Route: 048
  7. CARBIDOPA\LEVODOPA [Concomitant]
     Active Substance: CARBIDOPA\LEVODOPA
     Indication: Parkinson^s disease
     Route: 048
  8. DOPAMINE [Suspect]
     Active Substance: DOPAMINE HYDROCHLORIDE
     Indication: Product used for unknown indication
     Route: 065

REACTIONS (23)
  - Dyspnoea [Unknown]
  - Musculoskeletal stiffness [Unknown]
  - Dopamine dysregulation syndrome [Unknown]
  - Nocturia [Unknown]
  - Dyskinesia [Unknown]
  - Therapeutic product effect decreased [Unknown]
  - Hypoaesthesia [Unknown]
  - Adverse event [Unknown]
  - Discomfort [Unknown]
  - Speech disorder [Unknown]
  - Mobility decreased [Unknown]
  - Drug ineffective [Unknown]
  - Sense of oppression [Unknown]
  - Stubbornness [Unknown]
  - Abnormal behaviour [Unknown]
  - Propulsive gait [Unknown]
  - Mental disorder [Unknown]
  - Parkinson^s disease [Unknown]
  - On and off phenomenon [Unknown]
  - Disorientation [Unknown]
  - Cognitive disorder [Unknown]
  - Anxiety [Unknown]
  - Weight decreased [Unknown]

NARRATIVE: CASE EVENT DATE: 20240610
